FAERS Safety Report 7755601-X (Version None)
Quarter: 2011Q3

REPORT INFORMATION
  Report Type: 
  Country: None (occurrence: None)
  Receive Date: 20110916
  Receipt Date: 20110906
  Transmission Date: 20111222
  Serious: Yes (Hospitalization)
  Sender: FDA-Public Use
  Company Number: US-JNJFOC-20110102535

PATIENT
  Sex: Male

DRUGS (2)
  1. TYLENOL-500 [Suspect]
     Indication: PYREXIA
     Route: 048
  2. TYLENOL-500 [Suspect]
     Route: 048

REACTIONS (1)
  - TOXIC EPIDERMAL NECROLYSIS [None]
